FAERS Safety Report 4591926-7 (Version None)
Quarter: 2005Q1

REPORT INFORMATION
  Report Type: 
  Country: None (occurrence: None)
  Receive Date: 20050222
  Receipt Date: 20050214
  Transmission Date: 20050727
  Serious: Yes (Death, Hospitalization)
  Sender: FDA-Public Use
  Company Number: 212419

PATIENT
  Age: 81 Year
  Sex: Male

DRUGS (1)
  1. XOLAIR [Suspect]
     Indication: ASTHMA
     Dates: start: 20041230

REACTIONS (2)
  - CHOLECYSTITIS ACUTE [None]
  - IMPAIRED GASTRIC EMPTYING [None]
